FAERS Safety Report 5957106-5 (Version None)
Quarter: 2008Q4

REPORT INFORMATION
  Report Type: 
  Country: None (occurrence: None)
  Receive Date: 20081118
  Receipt Date: 20081113
  Transmission Date: 20090506
  Serious: Yes (Death)
  Sender: FDA-Public Use
  Company Number: PHHY2008BR28263

PATIENT
  Age: 81 Year
  Sex: Female

DRUGS (2)
  1. EXFORGE [Suspect]
     Indication: BLOOD PRESSURE
     Dosage: 160/5 1 TABLET HS
     Route: 048
     Dates: start: 20070101
  2. EXFORGE [Suspect]
     Indication: BLOOD PRESSURE
     Dosage: 160/10 1 TABLET EVERY NIGHT
     Route: 048

REACTIONS (2)
  - DRUG INEFFECTIVE [None]
  - SKIN CANCER [None]
